FAERS Safety Report 9121490 (Version 1)
Quarter: 2013Q1

REPORT INFORMATION
  Report Type: Spontaneous
  Country: US (occurrence: US)
  Receive Date: 20130225
  Receipt Date: 20130225
  Transmission Date: 20140127
  Serious: No
  Sender: FDA-Public Use
  Company Number: US-ENDO PHARMACEUTICALS INC.-FORT20110062

PATIENT
  Sex: Male
  Weight: 111.23 kg

DRUGS (1)
  1. FORTESTA [Suspect]
     Indication: HORMONE REPLACEMENT THERAPY
     Route: 061

REACTIONS (2)
  - Red blood cell abnormality [Not Recovered/Not Resolved]
  - Drug ineffective [Not Recovered/Not Resolved]
